FAERS Safety Report 7108907-1 (Version None)
Quarter: 2010Q4

REPORT INFORMATION
  Report Type: 
  Country: None (occurrence: None)
  Receive Date: 20101112
  Receipt Date: 20101103
  Transmission Date: 20110411
  Serious: Yes (Life-Threatening, Hospitalization)
  Sender: FDA-Public Use
  Company Number: 2010MA004311

PATIENT
  Age: 19 Year
  Sex: Male

DRUGS (2)
  1. CITALOPRAM HYDROBROMIDE [Suspect]
     Indication: DEPRESSION
     Dosage: 140 MG;1X;
  2. CITALOPRAM HYDROBROMIDE [Suspect]
     Indication: SUICIDAL IDEATION
     Dosage: 140 MG;1X;

REACTIONS (2)
  - HYPOXIC-ISCHAEMIC ENCEPHALOPATHY [None]
  - SUICIDE ATTEMPT [None]
